FAERS Safety Report 8306761-3 (Version None)
Quarter: 2012Q2

REPORT INFORMATION
  Report Type: 
  Country: None (occurrence: None)
  Receive Date: 20120424
  Receipt Date: 20120418
  Transmission Date: 20120825
  Serious: No
  Sender: FDA-Public Use
  Company Number: US-PFIZER INC-2012096789

PATIENT
  Sex: Female
  Weight: 58.957 kg

DRUGS (3)
  1. CHANTIX [Suspect]
     Dosage: 1 MG, 2X/DAY
     Route: 048
     Dates: start: 20120401
  2. COREG [Concomitant]
     Indication: HYPERTENSION
     Dosage: 50 MG, 2X/DAY
  3. CHANTIX [Suspect]
     Indication: SMOKING CESSATION THERAPY
     Dosage: 0.5 MG, 1X/DAY
     Route: 048
     Dates: start: 20120405, end: 20120401

REACTIONS (1)
  - NAUSEA [None]
